FAERS Safety Report 8335081 (Version 3)
Quarter: 2012Q4

REPORT INFORMATION
  Report Type: Report from Study
  Country: US (occurrence: US)
  Receive Date: 20120112
  Receipt Date: 20121107
  Transmission Date: 20130627
  Serious: Yes (Hospitalization, Other)
  Sender: FDA-Public Use
  Company Number: US-UCBSA-048654

PATIENT
  Age: 63 Year
  Sex: Male
  Weight: 79.79 kg

DRUGS (1)
  1. ROTIGOTINE [Suspect]
     Indication: PARKINSON^S DISEASE
     Route: 062

REACTIONS (1)
  - Suicide attempt [Recovered/Resolved]
